FAERS Safety Report 5367698-5 (Version None)
Quarter: 2007Q2

REPORT INFORMATION
  Report Type: 
  Country: None (occurrence: None)
  Receive Date: 20070622
  Receipt Date: 20070413
  Transmission Date: 20071010
  Serious: No
  Sender: FDA-Public Use
  Company Number: US-ASTRAZENECA-2007UW07378

PATIENT
  Sex: Male
  Weight: 83.9 kg

DRUGS (3)
  1. PULMICORT [Suspect]
     Indication: ASTHMA
     Route: 055
     Dates: start: 20070301
  2. ALBUTEROL [Concomitant]
  3. MULTI-VITAMIN [Concomitant]

REACTIONS (1)
  - ORAL MUCOSAL DISORDER [None]
